FAERS Safety Report 11865622 (Version 1)
Quarter: 2015Q4

REPORT INFORMATION
  Report Type: Spontaneous
  Country: IT (occurrence: IT)
  Receive Date: 20151223
  Receipt Date: 20151223
  Transmission Date: 20160305
  Serious: Yes (Life-Threatening, Other)
  Sender: FDA-Public Use
  Company Number: IT-GILEAD-2015-0188385

PATIENT
  Age: 44 Year
  Sex: Female

DRUGS (10)
  1. DAKLINZA [Suspect]
     Active Substance: DACLATASVIR
     Indication: HEPATITIS C
     Dosage: 30 MG, QD
     Route: 048
     Dates: start: 20150624, end: 20151207
  2. BACTRIM [Concomitant]
     Active Substance: SULFAMETHOXAZOLE\TRIMETHOPRIM
     Dosage: 1 DF, UNK
     Route: 048
  3. SOVALDI [Suspect]
     Active Substance: SOFOSBUVIR
     Indication: HEPATITIS C
     Dosage: 400 MG, QD
     Route: 048
     Dates: start: 20150624, end: 20151207
  4. METHADONE [Concomitant]
     Active Substance: METHADONE HYDROCHLORIDE
     Dosage: 60 MG, UNK
     Route: 048
  5. DELORAZEPAM [Concomitant]
     Active Substance: DELORAZEPAM
     Route: 048
  6. REYATAZ [Concomitant]
     Active Substance: ATAZANAVIR SULFATE
     Dosage: 300 MG, UNK
     Route: 048
  7. RANADIL [Concomitant]
     Dosage: 300 MG, UNK
     Route: 048
  8. TRUVADA [Concomitant]
     Active Substance: EMTRICITABINE\TENOFOVIR DISOPROXIL FUMARATE
     Dosage: 1 DF, UNK
     Route: 048
  9. KONAKION [Concomitant]
     Active Substance: PHYTONADIONE
     Dosage: 10 MG, UNK
     Route: 048
  10. NORVIR [Concomitant]
     Active Substance: RITONAVIR
     Dosage: 100 MG, UNK
     Route: 048

REACTIONS (1)
  - Bacterial sepsis [Not Recovered/Not Resolved]

NARRATIVE: CASE EVENT DATE: 20151202
